FAERS Safety Report 21839445 (Version 1)
Quarter: 2023Q1

REPORT INFORMATION
  Report Type: Spontaneous
  Country: FR (occurrence: FR)
  Receive Date: 20230109
  Receipt Date: 20230109
  Transmission Date: 20230417
  Serious: Yes (Other)
  Sender: FDA-Public Use
  Company Number: FR-ROCHE-3205624

PATIENT
  Age: 78 Year
  Sex: Male

DRUGS (3)
  1. TUKYSA [Suspect]
     Active Substance: TUCATINIB
     Indication: Breast cancer male
     Route: 048
     Dates: start: 20220914
  2. CAPECITABINE [Suspect]
     Active Substance: CAPECITABINE
     Indication: Breast cancer male
     Dosage: SINGLE 1 DAYS
     Route: 048
     Dates: start: 20220909
  3. CAPECITABINE [Suspect]
     Active Substance: CAPECITABINE
     Dosage: 600 MG, EVERY 1 DAY
     Route: 048
     Dates: start: 20220909

REACTIONS (2)
  - Hepatic cytolysis [Recovered/Resolved]
  - Rash maculo-papular [Not Recovered/Not Resolved]

NARRATIVE: CASE EVENT DATE: 20220921
